FAERS Safety Report 16235549 (Version 1)
Quarter: 2019Q2

REPORT INFORMATION
  Report Type: Spontaneous
  Country: US (occurrence: US)
  Receive Date: 20190424
  Receipt Date: 20190424
  Transmission Date: 20190711
  Serious: Yes (Other)
  Sender: FDA-Public Use
  Company Number: US-ALLERGAN-1915196US

PATIENT
  Sex: Female

DRUGS (1)
  1. ARMOUR THYROID [Suspect]
     Active Substance: THYROID, PORCINE
     Indication: WEIGHT CONTROL
     Route: 065

REACTIONS (4)
  - Throat cancer [Unknown]
  - Weight decreased [Unknown]
  - Off label use [Unknown]
  - Cardiac disorder [Unknown]
